FAERS Safety Report 5042999-9 (Version None)
Quarter: 2006Q3

REPORT INFORMATION
  Report Type: 
  Country: None (occurrence: None)
  Receive Date: 20060705
  Receipt Date: 20060626
  Transmission Date: 20061208
  Serious: Yes (Hospitalization)
  Sender: FDA-Public Use
  Company Number: PHNU2006DE02358

PATIENT
  Sex: Male

DRUGS (10)
  1. CLOZAPINE [Suspect]
     Indication: SCHIZOPHRENIA
     Dosage: 12.5 MG, QD
     Route: 048
     Dates: start: 20050901, end: 20050901
  2. CLOZAPINE [Suspect]
     Dosage: 37.5 MG/DAY
     Route: 048
     Dates: start: 20050902, end: 20050902
  3. CLOZAPINE [Suspect]
     Dosage: 75 MG/DAY
     Route: 048
     Dates: start: 20050903, end: 20050903
  4. CLOZAPINE [Suspect]
     Dosage: 100 MG/DAY
     Route: 048
     Dates: start: 20050904, end: 20050905
  5. CLOZAPINE [Suspect]
     Dosage: 125 MG/DAY
     Route: 048
     Dates: start: 20050906, end: 20050906
  6. CLOZAPINE [Suspect]
     Dosage: 150 MG/DAY
     Route: 048
     Dates: start: 20050907, end: 20050907
  7. CLOZAPINE [Suspect]
     Dosage: 175 MG/DAY
     Route: 048
     Dates: start: 20050908, end: 20050908
  8. CLOZAPINE [Suspect]
     Dosage: 200 MG/DAY
     Route: 048
     Dates: start: 20050908, end: 20050914
  9. TAVOR [Concomitant]
     Dosage: 4.5 MG/DAY
     Route: 048
     Dates: start: 20050901
  10. NOCTAMID [Concomitant]
     Dosage: 2 MG, QD
     Route: 048
     Dates: start: 20050901

REACTIONS (5)
  - BRONCHOPNEUMONIA [None]
  - MYOCARDITIS [None]
  - PERICARDITIS [None]
  - PLEURAL EFFUSION [None]
  - PYREXIA [None]
